FAERS Safety Report 12903130 (Version 1)
Quarter: 2016Q4

REPORT INFORMATION
  Report Type: Report from Study
  Country: NL (occurrence: NL)
  Receive Date: 20161102
  Receipt Date: 20161102
  Transmission Date: 20170207
  Serious: Yes (Other)
  Sender: FDA-Public Use
  Company Number: NL-AMGEN-NLDSL2016150149

PATIENT
  Age: 73 Year
  Sex: Male

DRUGS (8)
  1. XGEVA [Suspect]
     Active Substance: DENOSUMAB
     Indication: PRODUCT USED FOR UNKNOWN INDICATION
     Dosage: 120 MG, Q4WK
     Route: 058
     Dates: start: 20150126
  2. FENTANYL. [Concomitant]
     Active Substance: FENTANYL
     Dosage: 75 MUG, UNK
     Dates: start: 20160825
  3. XGEVA [Suspect]
     Active Substance: DENOSUMAB
     Dosage: 70 MG/ML, UNK
     Route: 058
     Dates: start: 20151018
  4. OXYCODON [Concomitant]
     Active Substance: OXYCODONE
     Dosage: 10 MG, UNK
     Dates: start: 20160825
  5. LEUPRORELINE [Concomitant]
     Active Substance: LEUPROLIDE
     Dosage: 45 MG, QD
     Dates: start: 20140208
  6. METOCLOPRAMIDE. [Concomitant]
     Active Substance: METOCLOPRAMIDE
     Dosage: 10 MG, UNK
     Dates: start: 20160523
  7. MACROGOL [Concomitant]
     Active Substance: POLYETHYLENE GLYCOLS
     Dosage: UNK UNK, QD
     Dates: start: 20150608
  8. CALCIUM/VITAMINE D3 SANDOZ [Concomitant]
     Dosage: 1000 MG, QD
     Dates: start: 20140208

REACTIONS (5)
  - Metastases to liver [Unknown]
  - Metastases to bone [Unknown]
  - Prostate cancer [Unknown]
  - Prostatic specific antigen increased [Unknown]
  - Pain [Not Recovered/Not Resolved]

NARRATIVE: CASE EVENT DATE: 20160215
